FAERS Safety Report 5901539-X (Version None)
Quarter: 2008Q3

REPORT INFORMATION
  Report Type: 
  Country: None (occurrence: None)
  Receive Date: 20080926
  Receipt Date: 20080926
  Transmission Date: 20090109
  Serious: Yes (Hospitalization)
  Sender: FDA-Public Use
  Company Number: None

PATIENT
  Age: 34 Year
  Sex: Male
  Weight: 104 kg

DRUGS (10)
  1. ZACTIMA 100MG ASTRAZENECA [Suspect]
     Indication: MALIGNANT GLIOMA
     Dosage: 100MG QOD X 28 DAYS
     Dates: start: 20080619, end: 20080911
  2. ETOPOSIDE [Suspect]
     Indication: MALIGNANT GLIOMA
     Dosage: 100MG QD X 21 DAYS
     Dates: start: 20080619, end: 20080911
  3. PROTONIX [Concomitant]
  4. MINOCYCLINE HCL [Concomitant]
  5. DEXAMETHASONE [Concomitant]
  6. TYLENOL (CAPLET) [Concomitant]
  7. LASIX [Concomitant]
  8. CLINDAMYCIN HCL [Concomitant]
  9. FUROSEMIDE [Concomitant]
  10. DILAUDID [Concomitant]

REACTIONS (11)
  - DISEASE PROGRESSION [None]
  - DYSPNOEA [None]
  - FATIGUE [None]
  - HYPOXIA [None]
  - MYALGIA [None]
  - OEDEMA [None]
  - ORAL CANDIDIASIS [None]
  - PNEUMOCYSTIS JIROVECI PNEUMONIA [None]
  - PULMONARY EMBOLISM [None]
  - PYREXIA [None]
  - TACHYCARDIA [None]
